FAERS Safety Report 25688019 (Version 1)
Quarter: 2025Q3

REPORT INFORMATION
  Report Type: Spontaneous
  Country: TW (occurrence: TW)
  Receive Date: 20250817
  Receipt Date: 20250817
  Transmission Date: 20251021
  Serious: Yes (Hospitalization, Other)
  Sender: UCB
  Company Number: TW-GSK-TW2025APC100938

PATIENT
  Age: 37 Year
  Sex: Male
  Weight: 84.7 kg

DRUGS (5)
  1. KEPPRA [Suspect]
     Active Substance: LEVETIRACETAM
     Indication: Brain operation
     Route: 041
     Dates: start: 20250606
  2. KETOTIFEN [Suspect]
     Active Substance: KETOTIFEN
     Indication: Pain
     Route: 041
     Dates: start: 20250606
  3. MANNITOL [Concomitant]
     Active Substance: MANNITOL
     Indication: Brain operation
     Route: 042
  4. REMIFENTANIL [Concomitant]
     Active Substance: REMIFENTANIL
     Indication: Pain
     Route: 042
     Dates: start: 20250606
  5. NIMBEX [Concomitant]
     Active Substance: CISATRACURIUM BESYLATE
     Indication: Anaesthesia
     Route: 042
     Dates: start: 20250606

REACTIONS (2)
  - Anaphylactic shock [Recovered/Resolved]
  - Product use in unapproved indication [Unknown]

NARRATIVE: CASE EVENT DATE: 20250606
